FAERS Safety Report 4647238-6 (Version None)
Quarter: 2005Q2

REPORT INFORMATION
  Report Type: 
  Country: None (occurrence: None)
  Receive Date: 20050426
  Receipt Date: 20050420
  Transmission Date: 20051028
  Serious: Yes (Other)
  Sender: FDA-Public Use
  Company Number: MED000100

PATIENT
  Sex: 0

DRUGS (2)
  1. LACTATED RINGER'S [Suspect]
  2. EYE DROPS [Concomitant]

REACTIONS (4)
  - CHEST DISCOMFORT [None]
  - DYSPNOEA [None]
  - PRURITUS [None]
  - URTICARIA GENERALISED [None]
